FAERS Safety Report 8312740 (Version 2)
Quarter: 2013Q1

REPORT INFORMATION
  Report Type: Spontaneous
  Country: US (occurrence: US)
  Receive Date: 20111227
  Receipt Date: 20130115
  Transmission Date: 20140127
  Serious: Yes (Other)
  Sender: FDA-Public Use
  Company Number: US-ROCHE-784571

PATIENT
  Age: 27 Year
  Sex: Female
  Weight: 78.09 kg

DRUGS (1)
  1. ACCUTANE [Suspect]
     Indication: ACNE
     Route: 048
     Dates: start: 19960716, end: 19961104

REACTIONS (5)
  - Crohn^s disease [Unknown]
  - Short-bowel syndrome [Unknown]
  - Inflammatory bowel disease [Unknown]
  - Emotional distress [Unknown]
  - Lip dry [Unknown]
